FAERS Safety Report 21816420 (Version 1)
Quarter: 2023Q1

REPORT INFORMATION
  Report Type: Report from Study
  Country: US (occurrence: US)
  Receive Date: 20230104
  Receipt Date: 20230104
  Transmission Date: 20230417
  Serious: No
  Sender: FDA-Public Use
  Company Number: US-ABBVIE-4217611

PATIENT
  Sex: Male

DRUGS (1)
  1. RINVOQ [Suspect]
     Active Substance: UPADACITINIB
     Indication: Product used for unknown indication
     Route: 048

REACTIONS (5)
  - White blood cell count decreased [Unknown]
  - Oral infection [Not Recovered/Not Resolved]
  - Large intestine infection [Unknown]
  - Breath odour [Not Recovered/Not Resolved]
  - Gastrointestinal oedema [Unknown]
